FAERS Safety Report 10248477 (Version 1)
Quarter: 2014Q2

REPORT INFORMATION
  Report Type: Spontaneous
  Country: CA (occurrence: CA)
  Receive Date: 20140620
  Receipt Date: 20140620
  Transmission Date: 20141212
  Serious: Yes (Other)
  Sender: FDA-Public Use
  Company Number: CA-AMGEN INC.-CANSP2014045852

PATIENT
  Age: 71 Year
  Sex: Female

DRUGS (10)
  1. ENBREL [Suspect]
     Indication: PSORIASIS
     Dosage: 50 MG, QWK
     Route: 065
     Dates: start: 20111207
  2. TYLENOL                            /00020001/ [Concomitant]
     Dosage: 3 15-30 MG, 6 TABLETS DAILY
  3. ARIPIPRAZOLE [Concomitant]
     Indication: STRESS
     Dosage: 2 MG, 0.5 TABLET DAILY
     Dates: start: 20140606
  4. ESOMEPRAZOLE MAGNESIUM [Concomitant]
     Dosage: 40 MG, 1 TABLET DAILY
  5. RAMIPRIL [Concomitant]
     Dosage: 5 MG, 1 CAPSULE DAILY
  6. METFORMIN [Concomitant]
     Indication: TYPE 2 DIABETES MELLITUS
     Dosage: 500 MG, 0.5 TABLET DAILY
  7. CLONAZEPAM [Concomitant]
     Dosage: UNK
  8. ROSUVASTATIN [Concomitant]
     Dosage: UNK
  9. PAROXETINE HYDROCHLORIDE [Concomitant]
     Dosage: 20 MG, 1 TABLET DAILY
  10. BABY ASPIRIN [Concomitant]
     Dosage: UNK

REACTIONS (3)
  - Rectal haemorrhage [Recovered/Resolved]
  - Muscle spasms [Recovered/Resolved]
  - Psoriasis [Not Recovered/Not Resolved]
